FAERS Safety Report 21031638 (Version 1)
Quarter: 2022Q3

REPORT INFORMATION
  Report Type: Other
  Country: US (occurrence: None)
  Receive Date: 20220701
  Receipt Date: 20220701
  Transmission Date: 20221027
  Serious: No
  Sender: FDA-Public Use
  Company Number: US-ROCHE-3011071

PATIENT
  Age: 65 Year
  Sex: Male

DRUGS (11)
  1. TOCILIZUMAB [Suspect]
     Active Substance: TOCILIZUMAB
     Indication: COVID-19 pneumonia
     Route: 065
  2. TOCILIZUMAB [Suspect]
     Active Substance: TOCILIZUMAB
     Indication: Respiratory failure
  3. DEXAMETHASONE [Concomitant]
     Active Substance: DEXAMETHASONE
     Indication: COVID-19 pneumonia
     Route: 042
  4. DEXAMETHASONE [Concomitant]
     Active Substance: DEXAMETHASONE
     Indication: Respiratory failure
  5. REMDESIVIR [Concomitant]
     Active Substance: REMDESIVIR
     Indication: COVID-19 pneumonia
     Route: 065
  6. REMDESIVIR [Concomitant]
     Active Substance: REMDESIVIR
     Indication: Respiratory failure
  7. HYDROCHLOROTHIAZIDE [Concomitant]
     Active Substance: HYDROCHLOROTHIAZIDE
  8. METOPROLOL [Concomitant]
     Active Substance: METOPROLOL
  9. IRBESARTAN [Concomitant]
     Active Substance: IRBESARTAN
  10. LASIX [Concomitant]
     Active Substance: FUROSEMIDE
  11. MIDODRINE [Concomitant]
     Active Substance: MIDODRINE
     Indication: Orthostatic hypotension
     Route: 065

REACTIONS (2)
  - Off label use [Unknown]
  - No adverse event [Unknown]
